FAERS Safety Report 4436348-4 (Version None)
Quarter: 2004Q2

REPORT INFORMATION
  Report Type: 
  Country: None (occurrence: None)
  Receive Date: 20040628
  Receipt Date: 20040126
  Transmission Date: 20050107
  Serious: Yes (Hospitalization)
  Sender: FDA-Public Use
  Company Number: 204353

PATIENT
  Age: 45 Year
  Sex: Male

DRUGS (5)
  1. RITUXAN [Suspect]
     Indication: LYMPHOMA
     Dosage: 848 MG, Q4W, INTRAVENOUS; 848 MG
     Route: 042
     Dates: start: 20031213, end: 20031213
  2. RITUXAN [Suspect]
     Indication: LYMPHOMA
     Dosage: 848 MG, Q4W, INTRAVENOUS; 848 MG
     Route: 042
     Dates: start: 20040102, end: 20040102
  3. CYCLOPHOSPHAMIDE [Concomitant]
  4. DOXORUBICIN HCL [Concomitant]
  5. VINCRISTINE [Concomitant]

REACTIONS (2)
  - CHILLS [None]
  - PYREXIA [None]
